FAERS Safety Report 24600523 (Version 1)
Quarter: 2024Q4

REPORT INFORMATION
  Report Type: Report from Study
  Country: ZA (occurrence: ZA)
  Receive Date: 20241110
  Receipt Date: 20241110
  Transmission Date: 20250114
  Serious: Yes (Death, Other)
  Sender: ALEXION PHARMACEUTICALS
  Company Number: ZA-AstraZeneca-CH-00734616A

PATIENT
  Age: 78 Year

DRUGS (13)
  1. DAPAGLIFLOZIN [Suspect]
     Active Substance: DAPAGLIFLOZIN
  2. DAPAGLIFLOZIN [Suspect]
     Active Substance: DAPAGLIFLOZIN
  3. DAPAGLIFLOZIN [Suspect]
     Active Substance: DAPAGLIFLOZIN
  4. DAPAGLIFLOZIN [Suspect]
     Active Substance: DAPAGLIFLOZIN
  5. Microlax [Concomitant]
  6. LINEN CLEMENS SUPER UNDERPAD 90X60CM 566064 [Concomitant]
  7. ACETYLCYSTEINE [Concomitant]
     Active Substance: ACETYLCYSTEINE
  8. Adco linctopent [Concomitant]
  9. BENYLIN FOUR FLU [Concomitant]
  10. LASIX [Concomitant]
     Active Substance: FUROSEMIDE
  11. Spiractin [Concomitant]
  12. SIMVASTATIN [Concomitant]
     Active Substance: SIMVASTATIN
  13. POTASSIUM CHLORIDE [Concomitant]
     Active Substance: POTASSIUM CHLORIDE

REACTIONS (2)
  - Death [Fatal]
  - Cardiac failure [Unknown]
